FAERS Safety Report 15589257 (Version 1)
Quarter: 2018Q4

REPORT INFORMATION
  Report Type: Spontaneous
  Country: US (occurrence: US)
  Receive Date: 20181106
  Receipt Date: 20181106
  Transmission Date: 20190205
  Serious: Yes (Disabling, Other)
  Sender: FDA-Public Use
  Company Number: US-ROCHE-2193786

PATIENT
  Age: 50 Year
  Sex: Female
  Weight: 68.95 kg

DRUGS (6)
  1. LETROZOLE. [Concomitant]
     Active Substance: LETROZOLE
     Route: 065
  2. TAXOTERE [Concomitant]
     Active Substance: DOCETAXEL
     Route: 065
     Dates: end: 20141218
  3. VITAMIN B12 [Concomitant]
     Active Substance: CYANOCOBALAMIN
  4. IBRANCE [Suspect]
     Active Substance: PALBOCICLIB
     Indication: BREAST CANCER METASTATIC
     Route: 065
  5. HERCEPTIN [Suspect]
     Active Substance: TRASTUZUMAB
     Indication: PRODUCT USED FOR UNKNOWN INDICATION
     Route: 065
  6. XGEVA [Suspect]
     Active Substance: DENOSUMAB
     Indication: FRACTURE
     Dosage: UNDER SKIN
     Route: 058
     Dates: start: 2018

REACTIONS (9)
  - Fall [Unknown]
  - Balance disorder [Unknown]
  - General physical health deterioration [Not Recovered/Not Resolved]
  - Mobility decreased [Unknown]
  - Ejection fraction decreased [Unknown]
  - Gait disturbance [Not Recovered/Not Resolved]
  - Osteoarthritis [Not Recovered/Not Resolved]
  - Joint noise [Unknown]
  - Arthralgia [Unknown]
